FAERS Safety Report 4452647-4 (Version None)
Quarter: 2004Q3

REPORT INFORMATION
  Report Type: 
  Country: None (occurrence: None)
  Receive Date: 20040916
  Receipt Date: 20040907
  Transmission Date: 20050211
  Serious: No
  Sender: FDA-Public Use
  Company Number: 04P-087-0256057-00

PATIENT
  Age: 65 Year
  Sex: Male

DRUGS (7)
  1. ISOPTIN [Suspect]
     Indication: SINUS TACHYCARDIA
     Dosage: 80 MG, 1 IN 1 D, PER ORAL
     Route: 048
     Dates: start: 20030529
  2. SULPIRIDE [Suspect]
     Dosage: 0.45 GM, 1 IN 1 D, PER ORAL
     Route: 048
     Dates: start: 20030718, end: 20040510
  3. CARBAMAZEPINE [Suspect]
     Dosage: 400 MG, 1 IN 1 D, PER ORAL
     Route: 048
     Dates: start: 20030718, end: 20040510
  4. COLONEL [Suspect]
     Dosage: 5.4 GM, 1 IN 1 D, PER ORAL
     Route: 048
     Dates: start: 20030718, end: 20040510
  5. NIFEDIPINE [Concomitant]
  6. AMOXAPINE [Concomitant]
  7. U-PAN [Concomitant]

REACTIONS (3)
  - GYNAECOMASTIA [None]
  - INDURATION [None]
  - PAIN [None]
